FAERS Safety Report 4946999-6 (Version None)
Quarter: 2006Q1

REPORT INFORMATION
  Report Type: 
  Country: None (occurrence: None)
  Receive Date: 20060310
  Receipt Date: 20060224
  Transmission Date: 20060701
  Serious: Yes (Hospitalization, Other)
  Sender: FDA-Public Use
  Company Number: 2005-US-00086

PATIENT
  Age: 49 Year
  Sex: Female
  Weight: 86.1834 kg

DRUGS (16)
  1. ALBUTEROL [Suspect]
     Indication: ASTHMA
     Dosage: 2.5 MG INHALATION
     Route: 055
  2. LEVOSALBUTAMOL HYDROCHLORIDE [Suspect]
     Indication: ASTHMA
     Dosage: 1.25 MG
  3. IPRATROPIUM BROMIDE (AEROSOL FOR INHALATION) [Suspect]
     Indication: ASTHMA
     Dosage: 2 PUFFS, QID, ORAL
     Route: 048
     Dates: start: 19900101
  4. LEVOSALBUTAMOL [Suspect]
     Indication: ASTHMA
     Dates: start: 19900101
  5. IPRATROPIUM (SOLUTION) [Suspect]
     Indication: ASTHMA
     Dosage: INHALATION
     Route: 055
  6. THEOPHYLLINE [Suspect]
  7. PRAMPEXOLE DIHYDROCHLORIDE [Concomitant]
  8. SERETIDE [Concomitant]
  9. GABAPENTIN [Concomitant]
  10. DIPROPHYLLINE [Concomitant]
  11. PANTOPRAZOLE [Concomitant]
  12. MONTELUKAST [Concomitant]
  13. PREDNISONE TAB [Concomitant]
  14. NEDOCROMIL SODIUM [Concomitant]
  15. TRAMADOL HCL [Concomitant]
  16. ZAFIRLUKAST (TABLETS) [Concomitant]

REACTIONS (22)
  - AORTIC VALVE INCOMPETENCE [None]
  - BLOOD GLUCOSE INCREASED [None]
  - BLOOD UREA DECREASED [None]
  - CARDIAC DISORDER [None]
  - CHEST DISCOMFORT [None]
  - CHEST PAIN [None]
  - DRUG INTERACTION [None]
  - ECHOCARDIOGRAM ABNORMAL [None]
  - ELECTROCARDIOGRAM ST SEGMENT ELEVATION [None]
  - HEART RATE DECREASED [None]
  - HEPATIC FUNCTION ABNORMAL [None]
  - LABORATORY TEST ABNORMAL [None]
  - MITRAL VALVE INCOMPETENCE [None]
  - PERICARDIAL EFFUSION [None]
  - PULMONARY ARTERIAL PRESSURE INCREASED [None]
  - SLEEP DISORDER [None]
  - SNORING [None]
  - STATUS ASTHMATICUS [None]
  - TRICUSPID VALVE INCOMPETENCE [None]
  - UNEVALUABLE EVENT [None]
  - UPPER AIRWAY RESISTANCE SYNDROME [None]
  - URINE ANALYSIS ABNORMAL [None]
